FAERS Safety Report 25860039 (Version 1)
Quarter: 2025Q3

REPORT INFORMATION
  Report Type: Spontaneous
  Country: US (occurrence: None)
  Receive Date: 20250927
  Receipt Date: 20250927
  Transmission Date: 20251021
  Serious: Yes (Disabling, Other)
  Sender: FDA-CTU
  Company Number: None

PATIENT
  Age: 78 Year
  Sex: Female
  Weight: 57.6 kg

DRUGS (6)
  1. PREDNISONE [Suspect]
     Active Substance: PREDNISONE
     Indication: Fistula
     Route: 048
  2. ASPIRIN [Concomitant]
     Active Substance: ASPIRIN
  3. EZETIMIBE [Concomitant]
     Active Substance: EZETIMIBE
  4. ROSUVASTATIN CALCIUM [Concomitant]
     Active Substance: ROSUVASTATIN CALCIUM
  5. B12 metoprolsucc er [Concomitant]
  6. CALCIUM ACETATE [Concomitant]
     Active Substance: CALCIUM ACETATE

REACTIONS (2)
  - Dialysis [None]
  - Pruritus [None]

NARRATIVE: CASE EVENT DATE: 20250924
